FAERS Safety Report 7424858-7 (Version None)
Quarter: 2011Q2

REPORT INFORMATION
  Report Type: 
  Country: None (occurrence: None)
  Receive Date: 20110419
  Receipt Date: 20110405
  Transmission Date: 20111010
  Serious: Yes (Disabling, Other)
  Sender: FDA-Public Use
  Company Number: GB-GENENTECH-316579

PATIENT
  Age: 63 Year
  Sex: Male

DRUGS (1)
  1. LUCENTIS [Suspect]
     Indication: PRODUCT USED FOR UNKNOWN INDICATION
     Dosage: UNK
     Route: 031
     Dates: start: 20101214

REACTIONS (4)
  - EYE INFECTION [None]
  - EYE INFLAMMATION [None]
  - ENDOPHTHALMITIS [None]
  - EXPOSURE TO CONTAMINATED DEVICE [None]
